FAERS Safety Report 5086991-7 (Version None)
Quarter: 2006Q3

REPORT INFORMATION
  Report Type: 
  Country: None (occurrence: None)
  Receive Date: 20060818
  Receipt Date: 20060731
  Transmission Date: 20061208
  Serious: Yes (Other)
  Sender: FDA-Public Use
  Company Number: US200608000258

PATIENT
  Sex: Male

DRUGS (2)
  1. ZYPREXA [Suspect]
     Dosage: EACH EVENING
     Dates: start: 20001214
  2. RISPERIDONE [Concomitant]

REACTIONS (6)
  - ARTERIAL GRAFT [None]
  - CATARACT [None]
  - CONDITION AGGRAVATED [None]
  - DIABETES MELLITUS [None]
  - HAEMODIALYSIS [None]
  - RENAL FAILURE ACUTE [None]
